FAERS Safety Report 7321857-0 (Version None)
Quarter: 2011Q1

REPORT INFORMATION
  Report Type: 
  Country: None (occurrence: None)
  Receive Date: 20110228
  Receipt Date: 20110222
  Transmission Date: 20110831
  Serious: Yes (Death, Hospitalization)
  Sender: FDA-Public Use
  Company Number: PHHY2011US15474

PATIENT
  Age: 58 Year
  Sex: Female

DRUGS (9)
  1. ARGATROBAN [Suspect]
     Dosage: 0.4 UG/KG/MIN
  2. ARGATROBAN [Suspect]
     Dosage: 0.2 UG/KG/MIN
  3. ARGATROBAN [Suspect]
     Dosage: 1.0-1.2 UG/KG/MIN
  4. ARGATROBAN [Suspect]
     Dosage: 0.1 UG/KG/MIN
  5. IMMUNOGLOBULINS [Concomitant]
     Dosage: 500 MG/KG, UNK
     Route: 042
  6. CEFAZOLIN [Concomitant]
     Dosage: UNK
  7. WARFARIN [Suspect]
     Dosage: 5 MG, UNK
  8. FONDAPARINUX SODIUM [Concomitant]
     Dosage: 10 MG, UNK
     Route: 058
  9. METHYLPREDNISOLONE [Concomitant]
     Dosage: 1 G, UNK
     Route: 042

REACTIONS (19)
  - HYPOXIA [None]
  - THROMBOSIS [None]
  - ACUTE RESPIRATORY FAILURE [None]
  - HAEMORRHAGE [None]
  - RADIAL PULSE ABNORMAL [None]
  - PULMONARY HAEMORRHAGE [None]
  - DEEP VEIN THROMBOSIS [None]
  - PERIPHERAL COLDNESS [None]
  - ACTIVATED PARTIAL THROMBOPLASTIN TIME PROLONGED [None]
  - CARDIO-RESPIRATORY ARREST [None]
  - SKIN TIGHTNESS [None]
  - HYPOVENTILATION [None]
  - EVANS SYNDROME [None]
  - INTERNATIONAL NORMALISED RATIO INCREASED [None]
  - HYPOVOLAEMIC SHOCK [None]
  - SWELLING [None]
  - COMPARTMENT SYNDROME [None]
  - ISCHAEMIA [None]
  - GANGRENE [None]
